FAERS Safety Report 20975480 (Version 1)
Quarter: 2022Q2

REPORT INFORMATION
  Report Type: Spontaneous
  Country: KR (occurrence: KR)
  Receive Date: 20220617
  Receipt Date: 20220617
  Transmission Date: 20220720
  Serious: Yes (Other)
  Sender: FDA-Public Use
  Company Number: KR-GLAXOSMITHKLINE-KRCH2022021048

PATIENT

DRUGS (2)
  1. NICOTINELL [Suspect]
     Active Substance: NICOTINE
     Indication: Smoking cessation therapy
     Dosage: QD (ONCE A DAY, BUT (THE NUMBER OF DOSE)S INCREASED TO TWO OR THREE)
  2. NICOTINELL [Suspect]
     Active Substance: NICOTINE
     Indication: Smoking cessation therapy
     Dosage: QD (ONCE A DAY, BUT (THE NUMBER OF DOSE)S INCREASED TO TWO OR THREE)

REACTIONS (5)
  - Drug dependence [Unknown]
  - Inappropriate schedule of product administration [Unknown]
  - Oropharyngeal pain [Unknown]
  - Productive cough [Unknown]
  - Drug ineffective [Unknown]
